FAERS Safety Report 11908443 (Version 1)
Quarter: 2016Q1

REPORT INFORMATION
  Report Type: Spontaneous
  Country: US (occurrence: US)
  Receive Date: 20160111
  Receipt Date: 20160111
  Transmission Date: 20160526
  Serious: Yes (Other)
  Sender: FDA-Public Use
  Company Number: US-PFIZER INC-2016008089

PATIENT
  Age: 59 Year
  Sex: Female
  Weight: 122 kg

DRUGS (1)
  1. VENLAFAXINE HCL [Suspect]
     Active Substance: VENLAFAXINE HYDROCHLORIDE
     Dates: end: 2010

REACTIONS (2)
  - Drug ineffective [Unknown]
  - Suicidal ideation [Unknown]
